FAERS Safety Report 13564371 (Version 3)
Quarter: 2017Q2

REPORT INFORMATION
  Report Type: Spontaneous
  Country: US (occurrence: US)
  Receive Date: 20170519
  Receipt Date: 20170619
  Transmission Date: 20170830
  Serious: Yes (Disabling, Other)
  Sender: FDA-Public Use
  Company Number: US-JNJFOC-20170513245

PATIENT
  Age: 41 Year
  Sex: Female

DRUGS (26)
  1. XYREM [Suspect]
     Active Substance: SODIUM OXYBATE
     Indication: CATAPLEXY
     Route: 048
     Dates: start: 200211, end: 200212
  2. TRIAMCINOLONE [Concomitant]
     Active Substance: TRIAMCINOLONE
     Route: 065
     Dates: start: 201509, end: 201510
  3. PARAGARD T 380A [Concomitant]
     Active Substance: COPPER
     Route: 065
     Dates: start: 201510
  4. XYREM [Suspect]
     Active Substance: SODIUM OXYBATE
     Indication: CATAPLEXY
     Route: 048
     Dates: start: 201408
  5. XYREM [Suspect]
     Active Substance: SODIUM OXYBATE
     Indication: CATAPLEXY
     Route: 048
     Dates: start: 200301, end: 201407
  6. XYREM [Suspect]
     Active Substance: SODIUM OXYBATE
     Indication: NARCOLEPSY
     Route: 048
     Dates: start: 201408
  7. LEXAPRO [Concomitant]
     Active Substance: ESCITALOPRAM OXALATE
     Route: 065
     Dates: start: 201509
  8. XYREM [Suspect]
     Active Substance: SODIUM OXYBATE
     Indication: NARCOLEPSY
     Route: 048
     Dates: start: 200301, end: 201407
  9. PROGESTERONE. [Concomitant]
     Active Substance: PROGESTERONE
     Route: 065
     Dates: start: 201510
  10. NASONEX [Concomitant]
     Active Substance: MOMETASONE FUROATE
     Route: 045
     Dates: start: 201510
  11. CORTISONE ACETATE. [Concomitant]
     Active Substance: CORTISONE ACETATE
     Route: 065
     Dates: start: 201510
  12. SINGULAIR [Concomitant]
     Active Substance: MONTELUKAST SODIUM
     Route: 065
     Dates: start: 201509
  13. XYREM [Suspect]
     Active Substance: SODIUM OXYBATE
     Indication: NARCOLEPSY
     Route: 048
     Dates: start: 201408
  14. TYLENOL EXTRA STRENGTH [Concomitant]
     Active Substance: ACETAMINOPHEN
     Route: 065
     Dates: start: 201509
  15. IBUPROFEN. [Concomitant]
     Active Substance: IBUPROFEN
     Route: 065
     Dates: start: 201509
  16. ZINC PICOLINATE [Concomitant]
     Active Substance: ZINC PICOLINATE
     Route: 065
     Dates: start: 201510
  17. FLOVENT HFA [Concomitant]
     Active Substance: FLUTICASONE PROPIONATE
     Route: 065
     Dates: start: 201509
  18. PROVIGIL [Concomitant]
     Active Substance: MODAFINIL
     Route: 065
     Dates: start: 201509
  19. VENTOLIN HFA [Concomitant]
     Active Substance: ALBUTEROL SULFATE
     Route: 065
     Dates: start: 201509
  20. XYREM [Suspect]
     Active Substance: SODIUM OXYBATE
     Indication: NARCOLEPSY
     Route: 048
     Dates: start: 200211, end: 200212
  21. ZYRTEC [Concomitant]
     Active Substance: CETIRIZINE HYDROCHLORIDE
     Route: 065
     Dates: start: 201510
  22. TESSALON [Concomitant]
     Active Substance: BENZONATATE
     Route: 065
     Dates: start: 201509
  23. PROGESTERONE. [Concomitant]
     Active Substance: PROGESTERONE
     Route: 065
     Dates: start: 201510
  24. TRAMADOL HYDROCHLORIDE. [Suspect]
     Active Substance: TRAMADOL HYDROCHLORIDE
     Indication: PAIN
     Route: 065
  25. XYREM [Suspect]
     Active Substance: SODIUM OXYBATE
     Indication: CATAPLEXY
     Route: 048
     Dates: start: 201408
  26. DHEA [Concomitant]
     Active Substance: PRASTERONE
     Route: 065
     Dates: start: 201510

REACTIONS (5)
  - Procedural pain [Not Recovered/Not Resolved]
  - Scar [Recovering/Resolving]
  - Cataplexy [Not Recovered/Not Resolved]
  - Nerve compression [Recovering/Resolving]
  - Drug ineffective [Unknown]

NARRATIVE: CASE EVENT DATE: 20170425
